FAERS Safety Report 4338428-0 (Version None)
Quarter: 2004Q2

REPORT INFORMATION
  Report Type: 
  Country: None (occurrence: None)
  Receive Date: 20040407
  Receipt Date: 20040324
  Transmission Date: 20050107
  Serious: Yes (Hospitalization)
  Sender: FDA-Public Use
  Company Number: RENA-10954

PATIENT
  Age: 64 Year
  Sex: Male

DRUGS (1)
  1. PHOSBLOCK - 250 MG TABLET [Suspect]
     Indication: HYPERPHOSPHATAEMIA

REACTIONS (2)
  - ABDOMINAL DISCOMFORT [None]
  - INTESTINAL OBSTRUCTION [None]
